FAERS Safety Report 21294092 (Version 3)
Quarter: 2022Q4

REPORT INFORMATION
  Report Type: Spontaneous
  Country: US (occurrence: US)
  Receive Date: 20220905
  Receipt Date: 20221211
  Transmission Date: 20230112
  Serious: No
  Sender: FDA-Public Use
  Company Number: US-JNJFOC-20220851810

PATIENT
  Age: 62 Year
  Sex: Male

DRUGS (8)
  1. ZYTIGA [Suspect]
     Active Substance: ABIRATERONE ACETATE
     Indication: Neoplasm malignant
     Route: 048
     Dates: end: 20220818
  2. ORGOVYX [Suspect]
     Active Substance: RELUGOLIX
     Indication: Neoplasm malignant
     Route: 065
     Dates: start: 20220526
  3. ORGOVYX [Suspect]
     Active Substance: RELUGOLIX
     Route: 048
     Dates: start: 20220525
  4. ORGOVYX [Suspect]
     Active Substance: RELUGOLIX
     Route: 048
     Dates: start: 20220526, end: 20220617
  5. ORGOVYX [Suspect]
     Active Substance: RELUGOLIX
     Route: 048
     Dates: start: 20220801
  6. ORGOVYX [Suspect]
     Active Substance: RELUGOLIX
  7. PREDNISONE [Concomitant]
     Active Substance: PREDNISONE
     Indication: Product used for unknown indication
     Route: 065
  8. PREDNISOLONE [Concomitant]
     Active Substance: PREDNISOLONE
     Indication: Product used for unknown indication
     Route: 065
     Dates: end: 20220818

REACTIONS (11)
  - Illness [Unknown]
  - Hepatic enzyme increased [Recovered/Resolved]
  - Blood triglycerides increased [Not Recovered/Not Resolved]
  - Fatigue [Unknown]
  - Insomnia [Not Recovered/Not Resolved]
  - Dyspnoea [Unknown]
  - Dizziness postural [Unknown]
  - Memory impairment [Recovering/Resolving]
  - Restless legs syndrome [Not Recovered/Not Resolved]
  - Cancer pain [Unknown]
  - Off label use [Unknown]

NARRATIVE: CASE EVENT DATE: 20221019
